FAERS Safety Report 7297921-1 (Version None)
Quarter: 2011Q1

REPORT INFORMATION
  Report Type: 
  Country: None (occurrence: None)
  Receive Date: 20110217
  Receipt Date: 20110216
  Transmission Date: 20110831
  Serious: Yes (Hospitalization)
  Sender: FDA-Public Use
  Company Number: US-JNJFOC-20110202664

PATIENT
  Sex: Male
  Weight: 82.56 kg

DRUGS (2)
  1. DURAGESIC-50 [Suspect]
     Dosage: (100 UG/HR X 3) NDC 50458-094-05
     Route: 062
  2. DURAGESIC-50 [Suspect]
     Indication: BACK PAIN
     Dosage: 100 UG/HR X 3
     Route: 062

REACTIONS (7)
  - PRODUCT QUALITY ISSUE [None]
  - PRODUCT ADHESION ISSUE [None]
  - HEART RATE INCREASED [None]
  - DRUG INEFFECTIVE [None]
  - WRONG TECHNIQUE IN DRUG USAGE PROCESS [None]
  - HYPERTENSION [None]
  - PAIN [None]
